FAERS Safety Report 23743676 (Version 1)
Quarter: 2024Q2

REPORT INFORMATION
  Report Type: Spontaneous
  Country: ES (occurrence: ES)
  Receive Date: 20240415
  Receipt Date: 20240415
  Transmission Date: 20240715
  Serious: Yes (Death, Hospitalization)
  Sender: FDA-Public Use
  Company Number: ES-GENMAB-2024-01247

PATIENT
  Age: 44 Year
  Sex: Male

DRUGS (1)
  1. EPCORITAMAB [Suspect]
     Active Substance: EPCORITAMAB
     Indication: Richter^s syndrome
     Dosage: 48 MG, CYCLICAL
     Route: 058
     Dates: start: 20231009, end: 20231024

REACTIONS (3)
  - Sepsis [Fatal]
  - Hepatocellular injury [Unknown]
  - Tumour lysis syndrome [Unknown]

NARRATIVE: CASE EVENT DATE: 20231019
